FAERS Safety Report 8203357-9 (Version None)
Quarter: 2012Q1

REPORT INFORMATION
  Report Type: 
  Country: None (occurrence: None)
  Receive Date: 20120312
  Receipt Date: 20120303
  Transmission Date: 20120608
  Serious: Yes (Hospitalization)
  Sender: FDA-Public Use
  Company Number: BR-ASTRAZENECA-2012SE15763

PATIENT
  Age: 88 Year
  Sex: Female
  Weight: 69 kg

DRUGS (2)
  1. LOSARTAN POTASSIUM [Concomitant]
     Indication: HYPERTENSION
     Route: 048
  2. SYMBICORT [Suspect]
     Indication: BRONCHITIS
     Dosage: 320/90 MCG TWO TIMES A DAY
     Route: 055
     Dates: start: 20100101

REACTIONS (6)
  - FALL [None]
  - TIBIA FRACTURE [None]
  - EXCORIATION [None]
  - OEDEMA PERIPHERAL [None]
  - OSTEOARTHRITIS [None]
  - THROMBOSIS [None]
